FAERS Safety Report 17642958 (Version 1)
Quarter: 2020Q2

REPORT INFORMATION
  Report Type: Spontaneous
  Country: US (occurrence: US)
  Receive Date: 20200408
  Receipt Date: 20200408
  Transmission Date: 20200713
  Serious: No
  Sender: FDA-Public Use
  Company Number: US-ALLERGAN-1911408US

PATIENT
  Sex: Female
  Weight: 124 kg

DRUGS (5)
  1. LILETTA [Suspect]
     Active Substance: LEVONORGESTREL
     Indication: CONTRACEPTION
     Dosage: 52 MG, SINGLE
     Route: 015
     Dates: start: 20181130
  2. ZOLOFT [Concomitant]
     Active Substance: SERTRALINE HYDROCHLORIDE
     Dosage: UNK
     Route: 048
  3. ZOLOFT [Concomitant]
     Active Substance: SERTRALINE HYDROCHLORIDE
     Indication: PERINATAL DEPRESSION
     Dosage: 50 MG, QD
     Route: 048
     Dates: start: 20190115, end: 20190213
  4. TYLENOL [Concomitant]
     Active Substance: ACETAMINOPHEN
     Dosage: 2 DF, Q6HR PRN
     Route: 048
  5. PRENATAL VITAMINS [Concomitant]
     Active Substance: VITAMINS
     Dosage: 1 DF, QD
     Route: 048
     Dates: start: 20180315

REACTIONS (1)
  - Device expulsion [Unknown]
